FAERS Safety Report 9776923 (Version 1)
Quarter: 2013Q4

REPORT INFORMATION
  Report Type: Report from Study
  Country: US (occurrence: US)
  Receive Date: 20131221
  Receipt Date: 20131221
  Transmission Date: 20140711
  Serious: Yes (Hospitalization)
  Sender: FDA-Public Use
  Company Number: US-ROCHE-1317838

PATIENT
  Sex: Female

DRUGS (4)
  1. TRASTUZUMAB EMTANSINE [Suspect]
     Indication: INFLAMMATORY CARCINOMA OF THE BREAST
     Route: 065
  2. LANTUS [Concomitant]
  3. HUMALOG [Concomitant]
  4. JANUMET [Concomitant]

REACTIONS (2)
  - Pneumonia [Unknown]
  - Metastases to lung [Unknown]
